FAERS Safety Report 8047040-1 (Version None)
Quarter: 2012Q1

REPORT INFORMATION
  Report Type: 
  Country: None (occurrence: None)
  Receive Date: 20120116
  Receipt Date: 20120106
  Transmission Date: 20120608
  Serious: Yes (Life-Threatening, Hospitalization)
  Sender: FDA-Public Use
  Company Number: US-JNJFOC-20120103107

PATIENT
  Age: 26 Year
  Sex: Female

DRUGS (3)
  1. HALOPERIDOL [Suspect]
     Indication: AGITATION
     Route: 042
  2. TERBUTALINE [Concomitant]
     Route: 065
  3. BETAMETHASONE [Suspect]
     Indication: PRODUCT USED FOR UNKNOWN INDICATION
     Route: 065

REACTIONS (4)
  - MATERNAL EXPOSURE DURING PREGNANCY [None]
  - COMA [None]
  - DYSTONIA [None]
  - HYPERAMMONAEMIA [None]
